FAERS Safety Report 9361654 (Version 1)
Quarter: 2013Q2

REPORT INFORMATION
  Report Type: Spontaneous
  Country: US (occurrence: US)
  Receive Date: 20130621
  Receipt Date: 20130621
  Transmission Date: 20140414
  Serious: Yes (Other)
  Sender: FDA-Public Use
  Company Number: US-PFIZER INC-2013182962

PATIENT
  Age: 56 Year
  Sex: Female
  Weight: 78.91 kg

DRUGS (1)
  1. LYRICA [Suspect]
     Indication: ANXIETY
     Dosage: 100 MG, 4X/DAY
     Route: 048

REACTIONS (6)
  - Off label use [Unknown]
  - Back disorder [Unknown]
  - Dental caries [Unknown]
  - Tooth fracture [Unknown]
  - Hypothyroidism [Unknown]
  - Feeling abnormal [Unknown]
